FAERS Safety Report 6104281-8 (Version None)
Quarter: 2009Q1

REPORT INFORMATION
  Report Type: 
  Country: None (occurrence: None)
  Receive Date: 20090305
  Receipt Date: 20090223
  Transmission Date: 20090719
  Serious: Yes (Life-Threatening, Other)
  Sender: FDA-Public Use
  Company Number: JP-WYE-H08024009

PATIENT
  Sex: Male
  Weight: 51 kg

DRUGS (7)
  1. ZOSYN [Suspect]
     Indication: PNEUMONIA
     Route: 041
     Dates: start: 20090115, end: 20090126
  2. PROHEPARUM [Concomitant]
     Indication: BILIARY CIRRHOSIS PRIMARY
     Dosage: 3 TABLETS/DAILY
     Route: 048
  3. BAKTAR [Concomitant]
     Indication: PROPHYLAXIS
     Dosage: 2 TAB/DAY
     Route: 048
     Dates: start: 20090116
  4. BENZALIN [Concomitant]
     Indication: INSOMNIA
     Dosage: 5 MG/DAY
     Route: 048
  5. PREDONINE [Concomitant]
     Indication: PNEUMONITIS
     Route: 048
     Dates: start: 20090114, end: 20090130
  6. URSO 250 [Concomitant]
     Indication: BILIARY CIRRHOSIS PRIMARY
     Route: 048
  7. SELBEX [Concomitant]
     Indication: GASTRITIS
     Route: 048

REACTIONS (2)
  - CLOSTRIDIUM DIFFICILE COLITIS [None]
  - SEPSIS [None]
